FAERS Safety Report 10245004 (Version 1)
Quarter: 2014Q2

REPORT INFORMATION
  Report Type: Spontaneous
  Country: DK (occurrence: NL)
  Receive Date: 20140618
  Receipt Date: 20140618
  Transmission Date: 20141212
  Serious: Yes (Hospitalization)
  Sender: FDA-Public Use
  Company Number: NL-FRI-1000068202

PATIENT
  Age: 76 Year
  Sex: Female

DRUGS (8)
  1. CITALOPRAM [Suspect]
     Indication: DEPRESSION
     Dosage: 20 MG
     Route: 048
     Dates: start: 20140318, end: 20140401
  2. MAGNESIUMHYDROXIDE PCH [Concomitant]
     Route: 048
  3. METOCLOPRAMIDE HCL [Concomitant]
     Route: 048
  4. LISINOPRIL ACCORD [Concomitant]
     Dosage: 10 MG
     Route: 048
  5. DORMICUM [Concomitant]
     Dosage: 7.5 MG
     Route: 048
  6. PROPRANOLOL HCL PCH RETARD [Concomitant]
     Dosage: 80 MG
     Route: 048
  7. THYRAX DUOTAB [Concomitant]
     Dosage: 0.05
     Route: 048
  8. OXAZEPAM ACCORD [Concomitant]
     Dosage: 60 MG
     Route: 048

REACTIONS (1)
  - Electrolyte imbalance [Recovered/Resolved]
